FAERS Safety Report 24906980 (Version 1)
Quarter: 2025Q1

REPORT INFORMATION
  Report Type: Spontaneous
  Country: US (occurrence: US)
  Receive Date: 20250130
  Receipt Date: 20250130
  Transmission Date: 20250409
  Serious: No
  Sender: SANOFI AVENTIS
  Company Number: US-SA-2025SA029024

PATIENT
  Sex: Female

DRUGS (21)
  1. DUPIXENT [Suspect]
     Active Substance: DUPILUMAB
     Indication: Asthma
     Route: 058
  2. AIRSUPRA [Concomitant]
     Active Substance: ALBUTEROL SULFATE\BUDESONIDE
  3. BREO ELLIPTA [Concomitant]
     Active Substance: FLUTICASONE FUROATE\VILANTEROL TRIFENATATE
  4. BUTALBITAL [Concomitant]
     Active Substance: BUTALBITAL
  5. COLESTIPOL HYDROCHLORIDE [Concomitant]
     Active Substance: COLESTIPOL HYDROCHLORIDE
  6. INCRUSE ELLIPTA [Concomitant]
     Active Substance: UMECLIDINIUM BROMIDE
  7. LAMICTAL [Concomitant]
     Active Substance: LAMOTRIGINE
  8. LEXAPRO [Concomitant]
     Active Substance: ESCITALOPRAM OXALATE
  9. LYRICA [Concomitant]
     Active Substance: PREGABALIN
  10. MELOXICAM [Concomitant]
     Active Substance: MELOXICAM
  11. METHOCARBAMOL [Concomitant]
     Active Substance: METHOCARBAMOL
  12. OMEPRAZOLE [Concomitant]
     Active Substance: OMEPRAZOLE
  13. ONDANSETRON [Concomitant]
     Active Substance: ONDANSETRON
  14. PLAQUENIL [Concomitant]
     Active Substance: HYDROXYCHLOROQUINE SULFATE
  15. PRAMIPEXOLE [Concomitant]
     Active Substance: PRAMIPEXOLE
  16. PREDNISONE [Concomitant]
     Active Substance: PREDNISONE
     Dosage: QD
  17. RIZATRIPTAN [Concomitant]
     Active Substance: RIZATRIPTAN
  18. ROSUVASTATIN [Concomitant]
     Active Substance: ROSUVASTATIN
  19. SINGULAIR [Concomitant]
     Active Substance: MONTELUKAST SODIUM
  20. SUMATRIPTAN [Concomitant]
     Active Substance: SUMATRIPTAN
  21. TRULICITY [Concomitant]
     Active Substance: DULAGLUTIDE

REACTIONS (1)
  - Dry eye [Not Recovered/Not Resolved]
